FAERS Safety Report 13773940 (Version 1)
Quarter: 2017Q3

REPORT INFORMATION
  Report Type: Spontaneous
  Country: US (occurrence: US)
  Receive Date: 20170720
  Receipt Date: 20170720
  Transmission Date: 20171127
  Serious: No
  Sender: FDA-Public Use
  Company Number: US-RECKITT BENCKISER HEALTHCARE INT LIMITED-RB-85650-2017

PATIENT
  Age: 67 Year
  Sex: Female

DRUGS (3)
  1. SUDAFED [Concomitant]
     Active Substance: PSEUDOEPHEDRINE HYDROCHLORIDE
     Indication: COUGH
     Dosage: UNK
     Route: 065
     Dates: start: 20170214
  2. MUCINEX DM [Suspect]
     Active Substance: DEXTROMETHORPHAN HYDROBROMIDE\GUAIFENESIN
     Indication: COUGH
     Dosage: 3 UNK, UNK
     Route: 065
     Dates: start: 201702
  3. CODINE LINCTUS [Concomitant]
     Indication: COUGH
     Dosage: UNK
     Route: 065
     Dates: start: 20170214

REACTIONS (2)
  - Dizziness [Not Recovered/Not Resolved]
  - Incorrect drug administration duration [Unknown]

NARRATIVE: CASE EVENT DATE: 20170215
